FAERS Safety Report 20122492 (Version 1)
Quarter: 2021Q4

REPORT INFORMATION
  Report Type: Spontaneous
  Country: US (occurrence: US)
  Receive Date: 20211128
  Receipt Date: 20211128
  Transmission Date: 20220303
  Serious: Yes (Other)
  Sender: FDA-Public Use
  Company Number: US-PURDUE-USA-2020-0193261

PATIENT
  Sex: Male

DRUGS (7)
  1. MS CONTIN [Suspect]
     Active Substance: MORPHINE SULFATE
     Indication: Back pain
     Dosage: UNKNOWN
     Route: 048
     Dates: start: 2009, end: 2017
  2. OXYCONTIN [Suspect]
     Active Substance: OXYCODONE HYDROCHLORIDE
     Indication: Back pain
     Dosage: UNKNOWN
     Route: 048
     Dates: start: 2009, end: 2017
  3. OXYCODONE HYDROCHLORIDE [Suspect]
     Active Substance: OXYCODONE HYDROCHLORIDE
     Indication: Back pain
     Dosage: UNKNOWN
     Route: 048
     Dates: start: 2007, end: 2017
  4. OXYCODONE HYDROCHLORIDE [Suspect]
     Active Substance: OXYCODONE HYDROCHLORIDE
     Indication: Back pain
     Dosage: UNKNOWN
     Route: 048
     Dates: start: 2009, end: 2017
  5. ACETAMINOPHEN\OXYCODONE HYDROCHLORIDE [Suspect]
     Active Substance: ACETAMINOPHEN\OXYCODONE HYDROCHLORIDE
     Indication: Back pain
     Dosage: UNKNOWN
     Route: 048
     Dates: start: 2009, end: 2017
  6. HYDROMORPHONE [Suspect]
     Active Substance: HYDROMORPHONE
     Indication: Back pain
     Dosage: UNKNOWN
     Route: 048
     Dates: start: 2009, end: 2017
  7. MORPHINE SULFATE [Suspect]
     Active Substance: MORPHINE SULFATE
     Indication: Back pain
     Dosage: UNKNOWN
     Route: 048
     Dates: start: 2009, end: 2017

REACTIONS (1)
  - Drug dependence [Unknown]
